FAERS Safety Report 14690403 (Version 1)
Quarter: 2018Q1

REPORT INFORMATION
  Report Type: Report from Study
  Country: DE (occurrence: DE)
  Receive Date: 20180328
  Receipt Date: 20180328
  Transmission Date: 20180509
  Serious: Yes (Other)
  Sender: FDA-Public Use
  Company Number: PHHY2018DE046177

PATIENT
  Age: 60 Year
  Sex: Female

DRUGS (1)
  1. ESTRAMON [Suspect]
     Active Substance: ESTRADIOL
     Indication: PRODUCT USED FOR UNKNOWN INDICATION
     Dosage: 50 UG, UNK
     Route: 065

REACTIONS (4)
  - Intestinal haemorrhage [Unknown]
  - Restlessness [Unknown]
  - Muscle spasms [Unknown]
  - Palpitations [Unknown]
